FAERS Safety Report 4303712-3 (Version None)
Quarter: 2004Q1

REPORT INFORMATION
  Report Type: 
  Country: None (occurrence: None)
  Receive Date: 20040220
  Receipt Date: 20031222
  Transmission Date: 20041129
  Serious: Yes (Other)
  Sender: FDA-Public Use
  Company Number: MESA00204000178

PATIENT

DRUGS (2)
  1. ROWASA [Suspect]
     Indication: DRUG USE FOR UNKNOWN INDICATION
     Dosage: UNK DAILY
     Route: 054
  2. ROWASA [Suspect]
     Indication: ILL-DEFINED DISORDER
     Dosage: UNK DAILY
     Route: 054

REACTIONS (1)
  - PERICARDITIS [None]
